FAERS Safety Report 6498213-0 (Version None)
Quarter: 2009Q4

REPORT INFORMATION
  Report Type: 
  Country: None (occurrence: None)
  Receive Date: 20091215
  Receipt Date: 20091211
  Transmission Date: 20100525
  Serious: Yes (Other)
  Sender: FDA-Public Use
  Company Number: A0834779A

PATIENT
  Age: 53 Year
  Sex: Female

DRUGS (3)
  1. ADVAIR DISKUS 100/50 [Suspect]
     Indication: ASTHMA
     Dosage: 1PUFF TWICE PER DAY
     Route: 055
     Dates: start: 20091101
  2. LISINOPRIL [Concomitant]
  3. PREMARIN [Concomitant]

REACTIONS (2)
  - ASTHMA [None]
  - INHALATION THERAPY [None]
